FAERS Safety Report 10924195 (Version 1)
Quarter: 2015Q1

REPORT INFORMATION
  Report Type: Spontaneous
  Country: CN (occurrence: None)
  Receive Date: 20150204
  Receipt Date: 20150204
  Transmission Date: 20150721
  Serious: Yes (Other)
  Sender: FDA-Public Use
  Company Number: CN-001515

PATIENT
  Age: 50 Year
  Sex: Male
  Weight: 60 kg

DRUGS (2)
  1. NS (NORMAL SALINDE ( SODIUM CHLORIDE) [Concomitant]
  2. MULTIHANCE [Suspect]
     Active Substance: GADOBENATE DIMEGLUMINE
     Indication: ANGIOGRAM
     Dosage: (NOT OTHERWISE SPECIFIED)
     Route: 042
     Dates: start: 20140610, end: 20140610

REACTIONS (6)
  - Eye disorder [None]
  - Rash [None]
  - Paralysis [None]
  - Dizziness [None]
  - Chest discomfort [None]
  - Nausea [None]

NARRATIVE: CASE EVENT DATE: 20140610
